FAERS Safety Report 18893225 (Version 1)
Quarter: 2021Q1

REPORT INFORMATION
  Report Type: Report from Study
  Country: US (occurrence: US)
  Receive Date: 20210215
  Receipt Date: 20210215
  Transmission Date: 20210420
  Serious: Yes (Hospitalization)
  Sender: FDA-Public Use
  Company Number: US-TAKEDA-2021TUS008745

PATIENT
  Age: 57 Year
  Sex: Female
  Weight: 100.6 kg

DRUGS (3)
  1. IXAZOMIB [Suspect]
     Active Substance: IXAZOMIB
     Indication: NON-RENAL CELL CARCINOMA OF KIDNEY
     Dosage: 5.5 MILLIGRAM, Q2WEEKS
     Route: 048
     Dates: start: 20210129
  2. DOXORUBICIN HYDROCHLORIDE. [Suspect]
     Active Substance: DOXORUBICIN HYDROCHLORIDE
     Indication: NON-RENAL CELL CARCINOMA OF KIDNEY
     Dosage: UNK
     Route: 065
  3. GEMCITABINE. [Suspect]
     Active Substance: GEMCITABINE
     Indication: NON-RENAL CELL CARCINOMA OF KIDNEY
     Dosage: 756 MILLIGRAM/SQ. METER, Q2WEEKS
     Route: 042
     Dates: start: 20210129

REACTIONS (3)
  - Thrombocytopenia [Not Recovered/Not Resolved]
  - Sepsis [Not Recovered/Not Resolved]
  - Anaemia [Not Recovered/Not Resolved]

NARRATIVE: CASE EVENT DATE: 20210206
